FAERS Safety Report 4712639-4 (Version None)
Quarter: 2005Q3

REPORT INFORMATION
  Report Type: 
  Country: None (occurrence: None)
  Receive Date: 20050711
  Receipt Date: 20050629
  Transmission Date: 20060218
  Serious: Yes (Other)
  Sender: FDA-Public Use
  Company Number: 2005094960

PATIENT
  Age: 62 Year
  Sex: Female
  Weight: 56.6996 kg

DRUGS (4)
  1. TIKOSYN [Suspect]
     Indication: ARRHYTHMIA
     Dosage: 1 MG (0.5 MG BID INTERVAL: EVERY DAY) ORAL
     Route: 048
     Dates: start: 20030801
  2. ZEBETA [Concomitant]
  3. COUMADIN [Concomitant]
  4. FLOVENT [Concomitant]

REACTIONS (3)
  - CONDITION AGGRAVATED [None]
  - MACULAR DEGENERATION [None]
  - VISUAL DISTURBANCE [None]
